FAERS Safety Report 7323858-5 (Version None)
Quarter: 2011Q1

REPORT INFORMATION
  Report Type: 
  Country: None (occurrence: None)
  Receive Date: 20110301
  Receipt Date: 20110223
  Transmission Date: 20110831
  Serious: Yes (Other)
  Sender: FDA-Public Use
  Company Number: A0915082A

PATIENT
  Age: 46 Year
  Sex: Female

DRUGS (7)
  1. ADVAIR DISKUS 100/50 [Suspect]
     Dosage: 1PUFF PER DAY
     Route: 055
     Dates: start: 20110101
  2. TRAZODONE HCL [Concomitant]
  3. CITALOPRAM HYDROBROMIDE [Concomitant]
  4. ADVAIR DISKUS 100/50 [Suspect]
     Indication: ASTHMA
     Dosage: 1PUFF TWICE PER DAY
     Route: 055
     Dates: start: 20000101, end: 20110101
  5. KLONOPIN [Concomitant]
  6. VENTOLIN [Concomitant]
  7. LISINOPRIL [Concomitant]

REACTIONS (7)
  - MALAISE [None]
  - ANXIETY [None]
  - PNEUMONIA [None]
  - NAUSEA [None]
  - COUGH [None]
  - CHEST PAIN [None]
  - CHEST DISCOMFORT [None]
